FAERS Safety Report 14828297 (Version 6)
Quarter: 2018Q2

REPORT INFORMATION
  Report Type: Spontaneous
  Country: US (occurrence: US)
  Receive Date: 20180430
  Receipt Date: 20180608
  Transmission Date: 20180711
  Serious: Yes (Hospitalization, Other)
  Sender: FDA-Public Use
  Company Number: US-ALLERGAN-1822763US

PATIENT
  Age: 43 Year
  Sex: Male
  Weight: 86 kg

DRUGS (6)
  1. ZOFRAN [Concomitant]
     Active Substance: ONDANSETRON HYDROCHLORIDE
     Indication: NAUSEA
     Dosage: UNK UNK, Q6HR
     Route: 065
     Dates: start: 20180419, end: 20180420
  2. PERCOCET [Concomitant]
     Active Substance: ACETAMINOPHEN\OXYCODONE HYDROCHLORIDE
     Indication: PAIN
     Dosage: UNK UNK, Q6HR
     Route: 065
     Dates: start: 20180419, end: 20180420
  3. DALVANCE [Suspect]
     Active Substance: DALBAVANCIN
     Indication: CELLULITIS STAPHYLOCOCCAL
     Dosage: 1500 MG, SINGLE
     Route: 042
     Dates: start: 20180423, end: 20180423
  4. COLACE [Concomitant]
     Active Substance: DOCUSATE SODIUM
     Indication: CONSTIPATION
     Dosage: UNK UNK, BID
     Route: 065
     Dates: start: 20180419, end: 20180420
  5. ZOFRAN [Concomitant]
     Active Substance: ONDANSETRON HYDROCHLORIDE
     Indication: VOMITING
  6. LOVENOX [Concomitant]
     Active Substance: ENOXAPARIN SODIUM
     Indication: THROMBOSIS PROPHYLAXIS
     Dosage: UNK UNK, QD
     Route: 065
     Dates: start: 20180419, end: 20180420

REACTIONS (10)
  - Liver function test increased [Recovering/Resolving]
  - Vomiting [Recovering/Resolving]
  - Sepsis syndrome [Recovering/Resolving]
  - Feeling abnormal [Unknown]
  - Acute kidney injury [Recovering/Resolving]
  - Flushing [Recovering/Resolving]
  - Colitis [Recovering/Resolving]
  - Chills [Unknown]
  - Hyperhidrosis [Recovering/Resolving]
  - Back pain [Recovering/Resolving]

NARRATIVE: CASE EVENT DATE: 20180423
